FAERS Safety Report 9154121 (Version 1)
Quarter: 2013Q1

REPORT INFORMATION
  Report Type: Spontaneous
  Country: US (occurrence: None)
  Receive Date: 20130306
  Receipt Date: 20130306
  Transmission Date: 20140127
  Serious: No
  Sender: FDA-Public Use
  Company Number: None

PATIENT
  Age: 51 Year
  Sex: Male

DRUGS (3)
  1. VELCADE [Suspect]
  2. CYTOXAN [Suspect]
  3. DEXAMETHASONE [Suspect]

REACTIONS (1)
  - Renal disorder [None]
